FAERS Safety Report 25226860 (Version 2)
Quarter: 2025Q2

REPORT INFORMATION
  Report Type: Spontaneous
  Country: SE (occurrence: SE)
  Receive Date: 20250422
  Receipt Date: 20250512
  Transmission Date: 20250716
  Serious: Yes (Hospitalization, Other)
  Sender: MYLAN
  Company Number: None

PATIENT
  Age: 48 Year
  Sex: Female
  Weight: 59 kg

DRUGS (48)
  1. CYKLOKAPRON [Suspect]
     Active Substance: TRANEXAMIC ACID
     Indication: Haemostasis
     Dosage: 1000 MILLIGRAM, Q8H (2 TABLETS X 3)
     Dates: start: 20250227, end: 20250303
  2. CYKLOKAPRON [Suspect]
     Active Substance: TRANEXAMIC ACID
     Indication: Hysterectomy
     Dosage: 1000 MILLIGRAM, Q8H (2 TABLETS X 3)
     Route: 065
     Dates: start: 20250227, end: 20250303
  3. CYKLOKAPRON [Suspect]
     Active Substance: TRANEXAMIC ACID
     Dosage: 1000 MILLIGRAM, Q8H (2 TABLETS X 3)
     Route: 065
     Dates: start: 20250227, end: 20250303
  4. CYKLOKAPRON [Suspect]
     Active Substance: TRANEXAMIC ACID
     Dosage: 1000 MILLIGRAM, Q8H (2 TABLETS X 3)
     Dates: start: 20250227, end: 20250303
  5. VONICOG ALFA [Suspect]
     Active Substance: VONICOG ALFA
     Indication: Haemostasis
     Route: 065
     Dates: start: 20250227, end: 20250227
  6. VONICOG ALFA [Suspect]
     Active Substance: VONICOG ALFA
     Indication: Hysterectomy
     Dates: start: 20250227, end: 20250227
  7. VONICOG ALFA [Suspect]
     Active Substance: VONICOG ALFA
     Dates: start: 20250227, end: 20250227
  8. VONICOG ALFA [Suspect]
     Active Substance: VONICOG ALFA
     Route: 065
     Dates: start: 20250227, end: 20250227
  9. VONICOG ALFA [Suspect]
     Active Substance: VONICOG ALFA
     Dates: start: 20250228, end: 20250228
  10. VONICOG ALFA [Suspect]
     Active Substance: VONICOG ALFA
     Dates: start: 20250228, end: 20250228
  11. VONICOG ALFA [Suspect]
     Active Substance: VONICOG ALFA
     Route: 065
     Dates: start: 20250228, end: 20250228
  12. VONICOG ALFA [Suspect]
     Active Substance: VONICOG ALFA
     Route: 065
     Dates: start: 20250228, end: 20250228
  13. VONICOG ALFA [Suspect]
     Active Substance: VONICOG ALFA
     Dates: start: 20250301, end: 20250301
  14. VONICOG ALFA [Suspect]
     Active Substance: VONICOG ALFA
     Route: 065
     Dates: start: 20250301, end: 20250301
  15. VONICOG ALFA [Suspect]
     Active Substance: VONICOG ALFA
     Dates: start: 20250301, end: 20250301
  16. VONICOG ALFA [Suspect]
     Active Substance: VONICOG ALFA
     Route: 065
     Dates: start: 20250301, end: 20250301
  17. VONICOG ALFA [Suspect]
     Active Substance: VONICOG ALFA
     Route: 065
     Dates: start: 20250303, end: 20250303
  18. VONICOG ALFA [Suspect]
     Active Substance: VONICOG ALFA
     Dates: start: 20250303, end: 20250303
  19. VONICOG ALFA [Suspect]
     Active Substance: VONICOG ALFA
     Dates: start: 20250303, end: 20250303
  20. VONICOG ALFA [Suspect]
     Active Substance: VONICOG ALFA
     Route: 065
     Dates: start: 20250303, end: 20250303
  21. VONICOG ALFA [Suspect]
     Active Substance: VONICOG ALFA
     Route: 065
  22. VONICOG ALFA [Suspect]
     Active Substance: VONICOG ALFA
  23. VONICOG ALFA [Suspect]
     Active Substance: VONICOG ALFA
  24. VONICOG ALFA [Suspect]
     Active Substance: VONICOG ALFA
     Route: 065
  25. VONICOG ALFA [Suspect]
     Active Substance: VONICOG ALFA
     Route: 042
  26. VONICOG ALFA [Suspect]
     Active Substance: VONICOG ALFA
  27. VONICOG ALFA [Suspect]
     Active Substance: VONICOG ALFA
  28. VONICOG ALFA [Suspect]
     Active Substance: VONICOG ALFA
     Route: 042
  29. VONICOG ALFA [Suspect]
     Active Substance: VONICOG ALFA
     Dates: start: 20250227, end: 20250303
  30. VONICOG ALFA [Suspect]
     Active Substance: VONICOG ALFA
     Dates: start: 20250227, end: 20250303
  31. VONICOG ALFA [Suspect]
     Active Substance: VONICOG ALFA
     Route: 042
     Dates: start: 20250227, end: 20250303
  32. VONICOG ALFA [Suspect]
     Active Substance: VONICOG ALFA
     Route: 042
     Dates: start: 20250227, end: 20250303
  33. VONICOG ALFA [Suspect]
     Active Substance: VONICOG ALFA
     Dates: start: 20250303, end: 20250303
  34. VONICOG ALFA [Suspect]
     Active Substance: VONICOG ALFA
     Dates: start: 20250303, end: 20250303
  35. VONICOG ALFA [Suspect]
     Active Substance: VONICOG ALFA
     Route: 042
     Dates: start: 20250303, end: 20250303
  36. VONICOG ALFA [Suspect]
     Active Substance: VONICOG ALFA
     Route: 042
     Dates: start: 20250303, end: 20250303
  37. CYKLOKAPRON [Suspect]
     Active Substance: TRANEXAMIC ACID
     Indication: Haemostasis
     Dosage: 1000 MILLIGRAM, Q8H
     Dates: start: 20250227
  38. CYKLOKAPRON [Suspect]
     Active Substance: TRANEXAMIC ACID
     Indication: Hysterectomy
     Dosage: 1000 MILLIGRAM, Q8H
     Dates: start: 20250227
  39. CYKLOKAPRON [Suspect]
     Active Substance: TRANEXAMIC ACID
     Dosage: 1000 MILLIGRAM, Q8H
     Route: 042
     Dates: start: 20250227
  40. CYKLOKAPRON [Suspect]
     Active Substance: TRANEXAMIC ACID
     Dosage: 1000 MILLIGRAM, Q8H
     Route: 042
     Dates: start: 20250227
  41. CYKLOKAPRON [Suspect]
     Active Substance: TRANEXAMIC ACID
  42. CYKLOKAPRON [Suspect]
     Active Substance: TRANEXAMIC ACID
  43. CYKLOKAPRON [Suspect]
     Active Substance: TRANEXAMIC ACID
     Route: 042
  44. CYKLOKAPRON [Suspect]
     Active Substance: TRANEXAMIC ACID
     Route: 042
  45. CYKLOKAPRON [Suspect]
     Active Substance: TRANEXAMIC ACID
  46. CYKLOKAPRON [Suspect]
     Active Substance: TRANEXAMIC ACID
     Route: 042
  47. CYKLOKAPRON [Suspect]
     Active Substance: TRANEXAMIC ACID
  48. CYKLOKAPRON [Suspect]
     Active Substance: TRANEXAMIC ACID
     Route: 042

REACTIONS (3)
  - Pulmonary embolism [Recovering/Resolving]
  - Bedridden [Recovering/Resolving]
  - Procedural pain [Recovering/Resolving]

NARRATIVE: CASE EVENT DATE: 20250305
